FAERS Safety Report 20393648 (Version 2)
Quarter: 2022Q1

REPORT INFORMATION
  Report Type: Spontaneous
  Country: CN (occurrence: CN)
  Receive Date: 20220128
  Receipt Date: 20220211
  Transmission Date: 20220423
  Serious: Yes (Hospitalization, Other)
  Sender: FDA-Public Use
  Company Number: CN-GILEAD-2022-0566907

PATIENT
  Age: 32 Year
  Sex: Male

DRUGS (3)
  1. VEMLIDY [Suspect]
     Active Substance: TENOFOVIR ALAFENAMIDE FUMARATE
     Indication: Hepatitis B
     Dosage: UNK
     Route: 048
     Dates: start: 2019
  2. TRANILAST [Suspect]
     Active Substance: TRANILAST
     Indication: Rhinitis allergic
     Route: 065
  3. ENTECAVIR [Concomitant]
     Active Substance: ENTECAVIR
     Indication: Hepatitis B

REACTIONS (10)
  - Renal injury [Recovering/Resolving]
  - Hepatitis B DNA increased [Unknown]
  - Drug ineffective [Unknown]
  - Urinary occult blood positive [Unknown]
  - Urine ketone body present [Unknown]
  - Red blood cell count increased [Unknown]
  - Jaundice [Unknown]
  - Magnetic resonance imaging abnormal [Unknown]
  - Rhinitis allergic [Unknown]
  - Transaminases increased [Recovering/Resolving]

NARRATIVE: CASE EVENT DATE: 20211201
